FAERS Safety Report 5188477-8 (Version None)
Quarter: 2006Q4

REPORT INFORMATION
  Report Type: 
  Country: None (occurrence: None)
  Receive Date: 20061214
  Receipt Date: 20061204
  Transmission Date: 20070319
  Serious: Yes (Other)
  Sender: FDA-Public Use
  Company Number: 2006061613

PATIENT
  Age: 71 Year
  Sex: Female
  Weight: 70.3075 kg

DRUGS (15)
  1. LYRICA [Suspect]
     Indication: PARAESTHESIA
     Dosage: 75 MG (75 MG, 1 IN 1 D), ORAL
     Route: 048
     Dates: start: 20060217
  2. BENADRYL [Concomitant]
  3. IBUPROFEN [Concomitant]
  4. VICODIN [Concomitant]
  5. ASPIRIN [Concomitant]
  6. MIACALCIN [Concomitant]
  7. ACTONEL [Concomitant]
  8. ALPHAGAN [Concomitant]
  9. ALL OTHER THERAPEUTIC PRODUCTS (ALL OTHER THERAPEUTIC PRODUCTS) [Concomitant]
  10. ALPRAZOLAM [Concomitant]
  11. ROGAINE [Concomitant]
  12. MULTI-VITAMINS [Concomitant]
  13. GINKO BILOBA (GINKGO BILOBA) [Concomitant]
  14. OMNICEF [Concomitant]
  15. ACETAMINOPHEN [Concomitant]

REACTIONS (2)
  - ARTHRITIS [None]
  - SWELLING FACE [None]
